FAERS Safety Report 8721519 (Version 2)
Quarter: 2012Q4

REPORT INFORMATION
  Report Type: 
  Country: US (occurrence: US)
  Receive Date: 20120813
  Receipt Date: 20121031
  Transmission Date: 20130627
  Serious: Yes (Other)
  Sender: FDA-Public Use
  Company Number: US-ALLERGAN-1210851US

PATIENT
  Age: 49 Year
  Sex: Female

DRUGS (3)
  1. BOTOX� [Suspect]
     Indication: CHRONIC MIGRAINE
     Dosage: 155 UNITS, single
     Route: 030
     Dates: start: 20120510, end: 20120510
  2. BOTOX� [Suspect]
     Dosage: UNK, single
     Dates: start: 20110808, end: 20110808
  3. MAXALT [Concomitant]
     Indication: MIGRAINE
     Dosage: UNK UNK, prn
     Route: 048

REACTIONS (2)
  - Atrial tachycardia [Not Recovered/Not Resolved]
  - Arrhythmia [Not Recovered/Not Resolved]
